FAERS Safety Report 11872492 (Version 1)
Quarter: 2015Q4

REPORT INFORMATION
  Report Type: Report from Study
  Country: US (occurrence: US)
  Receive Date: 20151228
  Receipt Date: 20151228
  Transmission Date: 20160305
  Serious: Yes (Hospitalization)
  Sender: FDA-Public Use
  Company Number: US-JNJFOC-20151219602

PATIENT
  Age: 82 Year
  Sex: Female
  Weight: 64 kg

DRUGS (7)
  1. PERCOCET [Concomitant]
     Active Substance: ACETAMINOPHEN\OXYCODONE HYDROCHLORIDE
     Indication: PAIN
  2. LORAZEPAM. [Concomitant]
     Active Substance: LORAZEPAM
     Indication: NAUSEA
  3. VITAMIN B+C [Concomitant]
     Indication: SUPPLEMENTATION THERAPY
  4. TYLENOL [Concomitant]
     Active Substance: ACETAMINOPHEN
     Indication: PAIN
  5. IMBRUVICA [Suspect]
     Active Substance: IBRUTINIB
     Indication: MANTLE CELL LYMPHOMA
     Route: 065
     Dates: start: 2015
  6. IMBRUVICA [Suspect]
     Active Substance: IBRUTINIB
     Indication: MANTLE CELL LYMPHOMA
     Route: 065
     Dates: start: 201403, end: 2015
  7. METAMUCIL REGULAR [Concomitant]
     Indication: GASTROINTESTINAL DISORDER

REACTIONS (7)
  - Nausea [Recovered/Resolved]
  - Cholelithiasis [Recovered/Resolved]
  - Procedural pain [Recovered/Resolved]
  - Urticaria [Recovered/Resolved]
  - Gastrointestinal infection [Recovered/Resolved]
  - Haemobilia [Recovered/Resolved]
  - Muscle spasms [Not Recovered/Not Resolved]

NARRATIVE: CASE EVENT DATE: 20151029
